FAERS Safety Report 4648578-7 (Version None)
Quarter: 2005Q2

REPORT INFORMATION
  Report Type: 
  Country: None (occurrence: None)
  Receive Date: 20050427
  Receipt Date: 20050415
  Transmission Date: 20051028
  Serious: Yes (Hospitalization)
  Sender: FDA-Public Use
  Company Number: 2005027281

PATIENT
  Age: 45 Year
  Sex: Male
  Weight: 52.6 kg

DRUGS (1)
  1. SULPERAZON  (SULBACTAM, CEFOPERAZONE) [Suspect]
     Indication: PANCREATITIS CHRONIC
     Dosage: 1 GRAM (1 GRAM, QD), INTRAVENOUS
     Route: 042
     Dates: start: 20050117, end: 20050119

REACTIONS (2)
  - GUTTATE PSORIASIS [None]
  - TONSILLITIS STREPTOCOCCAL [None]
